FAERS Safety Report 10784742 (Version 2)
Quarter: 2015Q1

REPORT INFORMATION
  Report Type: Spontaneous
  Country: FR (occurrence: None)
  Receive Date: 20150209
  Receipt Date: 20150218
  Transmission Date: 20150721
  Serious: Yes (Life-Threatening)
  Sender: FDA-Public Use
  Company Number: FK201500571

PATIENT
  Age: 30 Year
  Sex: Female

DRUGS (5)
  1. SEVOFLURANE (SEVOFLURANE) (SEVOFLURANE) [Suspect]
     Active Substance: SEVOFLURANE
     Indication: MAINTENANCE OF ANAESTHESIA
     Route: 042
  2. MIDAZOLAM [Suspect]
     Active Substance: MIDAZOLAM\MIDAZOLAM HYDROCHLORIDE
     Indication: INDUCTION OF ANAESTHESIA
  3. KETAMINE (KETAMINE) (KETAMINE) [Suspect]
     Active Substance: KETAMINE
     Indication: INDUCTION OF ANAESTHESIA
  4. SUFENTANIL [Suspect]
     Active Substance: SUFENTANIL
     Indication: INDUCTION OF ANAESTHESIA
     Dosage: 25 UG, 1 IN 1 TOTAL
     Route: 042
  5. PROPOFOL (MANUFACTURER UNKNOWN) (PROPOFOL) (PROPOFOL) [Suspect]
     Active Substance: PROPOFOL
     Indication: INDUCTION OF ANAESTHESIA

REACTIONS (6)
  - Cardio-respiratory arrest [None]
  - Long QT syndrome [None]
  - Ventricular tachycardia [None]
  - Hypokalaemia [None]
  - Torsade de pointes [None]
  - Ventricular fibrillation [None]
